FAERS Safety Report 8365002-1 (Version None)
Quarter: 2012Q2

REPORT INFORMATION
  Report Type: 
  Country: None (occurrence: None)
  Receive Date: 20120516
  Receipt Date: 20120511
  Transmission Date: 20120825
  Serious: Yes (Hospitalization)
  Sender: FDA-Public Use
  Company Number: US-GLAXOSMITHKLINE-A0977567A

PATIENT
  Age: 43 Year
  Sex: Male
  Weight: 97.9 kg

DRUGS (7)
  1. CARBOPLATIN [Suspect]
     Indication: OESOPHAGEAL ADENOCARCINOMA METASTATIC
     Route: 042
     Dates: start: 20120405
  2. LISINOPRIL AND HYDROCHLOROTHIAZIDE [Concomitant]
  3. LASOPRAZOLE [Concomitant]
     Dosage: 30MG PER DAY
  4. PACLITAXEL [Suspect]
     Indication: OESOPHAGEAL ADENOCARCINOMA METASTATIC
     Route: 042
     Dates: start: 20120405
  5. SIMVASTATIN [Concomitant]
     Dosage: 40MG PER DAY
  6. GEMFIBROZIL [Concomitant]
     Dosage: 600MG TWICE PER DAY
  7. LAPATINIB [Suspect]
     Indication: OESOPHAGEAL ADENOCARCINOMA METASTATIC
     Dosage: 750MG PER DAY
     Route: 048
     Dates: start: 20120405

REACTIONS (5)
  - RED BLOOD CELL COUNT DECREASED [None]
  - FEBRILE NEUTROPENIA [None]
  - HAEMOGLOBIN DECREASED [None]
  - WHITE BLOOD CELL COUNT DECREASED [None]
  - HAEMATOCRIT DECREASED [None]
